FAERS Safety Report 8084253 (Version 2)
Quarter: 2013Q4

REPORT INFORMATION
  Report Type: Spontaneous
  Country: BR (occurrence: BR)
  Receive Date: 20110810
  Receipt Date: 20131004
  Transmission Date: 20140711
  Serious: No
  Sender: FDA-Public Use
  Company Number: BR-ROCHE-794528

PATIENT
  Sex: Female

DRUGS (2)
  1. ROACUTAN [Suspect]
     Indication: PRODUCT USED FOR UNKNOWN INDICATION
     Route: 048
     Dates: start: 201010, end: 20110801
  2. SELENE (BRAZIL) [Concomitant]
     Indication: CONTRACEPTION
     Route: 048

REACTIONS (2)
  - Pregnancy [Unknown]
  - No adverse event [Unknown]
